FAERS Safety Report 8294362-5 (Version None)
Quarter: 2012Q2

REPORT INFORMATION
  Report Type: 
  Country: None (occurrence: None)
  Receive Date: 20120418
  Receipt Date: 20120410
  Transmission Date: 20120825
  Serious: Yes (Hospitalization, Disabling, Other)
  Sender: FDA-Public Use
  Company Number: US-CELGENEUS-163-21880-12012479

PATIENT
  Sex: Female

DRUGS (32)
  1. ACETAMINOPEN [Concomitant]
     Indication: PAIN
     Dosage: 660 MILLIGRAM
     Route: 065
  2. AMLODIPINE [Concomitant]
     Dosage: 5 MILLIGRAM
     Route: 048
  3. METOPROLOL SUCCINATE EXTENDED RELEASE [Concomitant]
     Dosage: 550 MILLIGRAM
     Route: 048
  4. OMEPRAZOLE [Concomitant]
     Dosage: 7.5 MILLIGRAM
     Route: 048
  5. POTASSIUM CHLORIDE [Concomitant]
     Dosage: 7.5 MILLIGRAM
     Route: 048
  6. TIMOLOL MALEATE [Concomitant]
     Dosage: 7.5 MILLIGRAM
     Route: 048
  7. CLARITIN [Concomitant]
     Dosage: 7.5 MILLIGRAM
     Route: 048
  8. OMEPRAZOLE [Concomitant]
     Dosage: 20 MILLIGRAM
     Route: 048
  9. AMLODIPINE [Concomitant]
     Dosage: 7.5 MILLIGRAM
     Route: 048
  10. RAMIPRIL [Concomitant]
     Dosage: 10 MILLIGRAM
     Route: 048
  11. MAGNESIUM HYDROXIDE TAB [Concomitant]
     Route: 048
  12. ASPIRIN [Concomitant]
     Dosage: 81 MILLIGRAM
     Route: 048
  13. MILK OF MAGNESIA TAB [Concomitant]
     Indication: CONSTIPATION
     Dosage: 60 MILLILITER
     Route: 048
  14. REMERON [Concomitant]
     Dosage: 7.5 MILLIGRAM
     Route: 048
  15. DEXAMETHASONE [Concomitant]
     Dosage: 40 MILLIGRAM
     Route: 048
  16. DEXAMETHASONE [Concomitant]
     Dosage: 7.5 MILLIGRAM
     Route: 048
  17. ASPIRIN [Concomitant]
     Dosage: 7.5 MILLIGRAM
     Route: 048
  18. LATANOPROST [Concomitant]
     Dosage: 7.5 MILLIGRAM
     Route: 048
  19. POTASSIUM CHLORIDE [Concomitant]
     Dosage: 10 MILLIEQUIVALENTS
     Route: 048
  20. DULCOLAX [Concomitant]
     Dosage: 7.5 MILLIGRAM
     Route: 048
  21. CLARITIN [Concomitant]
     Dosage: 10 MILLIGRAM
     Route: 048
  22. MILK OF MAGNESIA TAB [Concomitant]
     Dosage: 7.5 MILLIGRAM
     Route: 048
  23. MAGNESIUM OXIDE [Concomitant]
     Dosage: 400 MILLIGRAM
     Route: 048
  24. MAGNESIUM OXIDE [Concomitant]
     Dosage: 7.5 MILLIGRAM
     Route: 048
  25. REMERON [Concomitant]
     Dosage: 50 MILLIGRAM
     Route: 065
  26. LATANOPROST [Concomitant]
     Dosage: EACH EYE
     Route: 047
  27. METOPROLOL SUCCINATE EXTENDED RELEASE [Concomitant]
     Dosage: 7.5 MILLIGRAM
     Route: 048
  28. RAMIPRIL [Concomitant]
     Dosage: 7.5 MILLIGRAM
     Route: 048
  29. REVLIMID [Suspect]
     Indication: MULTIPLE MYELOMA
     Dosage: 25 MILLIGRAM
     Route: 048
     Dates: start: 20090601, end: 20120120
  30. ACETAMINOPEN [Concomitant]
  31. DULCOLAX [Concomitant]
     Indication: CONSTIPATION
     Route: 054
  32. TIMOLOL MALEATE [Concomitant]
     Dosage: EACH EYE
     Route: 047

REACTIONS (1)
  - PROGRESSIVE MULTIFOCAL LEUKOENCEPHALOPATHY [None]
